FAERS Safety Report 19893696 (Version 2)
Quarter: 2021Q4

REPORT INFORMATION
  Report Type: Spontaneous
  Country: ID (occurrence: ID)
  Receive Date: 20210928
  Receipt Date: 20211005
  Transmission Date: 20220303
  Serious: Yes (Death, Hospitalization)
  Sender: FDA-Public Use
  Company Number: ID-SA-SAC20210927001073

PATIENT
  Age: 89 Year
  Sex: Male
  Weight: 75 kg

DRUGS (10)
  1. APIDRA [Suspect]
     Active Substance: INSULIN GLULISINE
     Indication: Type 2 diabetes mellitus
     Dosage: UNK
     Route: 058
     Dates: start: 2020, end: 20210809
  2. LANTUS [Suspect]
     Active Substance: INSULIN GLARGINE
     Indication: Type 2 diabetes mellitus
     Dosage: UNK
     Route: 065
     Dates: end: 20210809
  3. SODIUM CHLORIDE [Concomitant]
     Active Substance: SODIUM CHLORIDE
     Dosage: 5 DROP
     Route: 065
  4. DEXAMETHASONE [Concomitant]
     Active Substance: DEXAMETHASONE
     Dosage: 7.5 MG, QD
     Route: 065
  5. MEROPENEM [Concomitant]
     Active Substance: MEROPENEM
     Dosage: 1 G, Q8H
     Route: 065
  6. OMEPRAZOLE [Concomitant]
     Active Substance: OMEPRAZOLE
     Dosage: 40 MG, Q12H
     Route: 065
  7. REMDESIVIR [Concomitant]
     Active Substance: REMDESIVIR
     Dosage: 100 MG, QD
     Route: 065
  8. ZINC [Concomitant]
     Active Substance: ZINC
     Dosage: 20 MG, BID
     Route: 065
  9. CANDESARTAN [Concomitant]
     Active Substance: CANDESARTAN
     Dosage: 8 MG, QD
     Route: 065
  10. OXYGEN [Concomitant]
     Active Substance: OXYGEN
     Dosage: 6 L/MIN
     Route: 065

REACTIONS (10)
  - COVID-19 [Fatal]
  - Cough [Fatal]
  - Dyspnoea [Fatal]
  - Wheezing [Fatal]
  - Anosmia [Fatal]
  - Nausea [Fatal]
  - Vomiting [Fatal]
  - Decreased appetite [Fatal]
  - Pyrexia [Fatal]
  - Somnolence [Fatal]

NARRATIVE: CASE EVENT DATE: 20210801
